FAERS Safety Report 25213351 (Version 2)
Quarter: 2025Q2

REPORT INFORMATION
  Report Type: Spontaneous
  Country: US (occurrence: US)
  Receive Date: 20250418
  Receipt Date: 20250421
  Transmission Date: 20250717
  Serious: Yes (Other)
  Sender: PFIZER
  Company Number: US-PFIZER INC-202500076186

PATIENT
  Age: 76 Year
  Sex: Male
  Weight: 95.25 kg

DRUGS (9)
  1. METOPROLOL TARTRATE [Interacting]
     Active Substance: METOPROLOL TARTRATE
     Indication: Angina pectoris
     Dosage: 25 MG, 2X/DAY
     Route: 048
  2. METOPROLOL TARTRATE [Interacting]
     Active Substance: METOPROLOL TARTRATE
     Indication: Dyspnoea
  3. LASIX [Interacting]
     Active Substance: FUROSEMIDE
     Indication: Fluid retention
     Route: 042
  4. ATORVASTATIN [Concomitant]
     Active Substance: ATORVASTATIN
     Indication: Blood cholesterol increased
  5. AMLODIPINE [Concomitant]
     Active Substance: AMLODIPINE BESYLATE
     Indication: Hypertension
     Dosage: 10-320, 1X/DAY
  6. VALSARTAN [Concomitant]
     Active Substance: VALSARTAN
     Indication: Hypertension
  7. ASPIRIN [Concomitant]
     Active Substance: ASPIRIN
  8. ASPIRIN [Concomitant]
     Active Substance: ASPIRIN
     Indication: Anticoagulant therapy
  9. CALTRATE WITH VITAMIN D [Concomitant]
     Active Substance: CALCIUM CARBONATE\CHOLECALCIFEROL
     Dosage: UNK, 1X/DAY

REACTIONS (7)
  - Myocardial infarction [Unknown]
  - Drug interaction [Unknown]
  - Urinary retention [Unknown]
  - Dysuria [Unknown]
  - Blood urine present [Unknown]
  - Blood sodium decreased [Unknown]
  - Hypervolaemia [Unknown]
